FAERS Safety Report 6054921-7 (Version None)
Quarter: 2009Q1

REPORT INFORMATION
  Report Type: 
  Country: None (occurrence: None)
  Receive Date: 20090128
  Receipt Date: 20090121
  Transmission Date: 20090719
  Serious: Yes (Hospitalization, Other)
  Sender: FDA-Public Use
  Company Number: PHHY2008JP25976

PATIENT
  Sex: Male

DRUGS (6)
  1. TEGRETOL [Suspect]
     Dosage: 33 MG, TID
     Route: 048
     Dates: start: 20070420, end: 20070525
  2. ZYLORIC [Suspect]
     Indication: HYPERURICAEMIA
     Dosage: 100 MG, BID
     Route: 048
     Dates: start: 20070413, end: 20070510
  3. ZYLORIC [Suspect]
     Dosage: 100 MG, TID
     Route: 048
     Dates: start: 20070511, end: 20070525
  4. MYSLEE [Concomitant]
     Indication: CYCLOPIA
     Dosage: 5 MG, QD
     Dates: start: 20031118
  5. BLOPRESS [Concomitant]
     Indication: HYPERTENSION
     Dosage: 4 MG
     Route: 048
     Dates: start: 20000606
  6. CYANOCOBALAMIN [Concomitant]
     Indication: POLYNEUROPATHY
     Dosage: 1500 UG
     Route: 048
     Dates: start: 20000606, end: 20070420

REACTIONS (8)
  - ANAEMIA [None]
  - APLASIA PURE RED CELL [None]
  - CHROMATURIA [None]
  - DRUG ERUPTION [None]
  - DRUG INEFFECTIVE [None]
  - HAEMOGLOBINURIA [None]
  - HAEMOLYTIC ANAEMIA [None]
  - TRANSFUSION [None]
